FAERS Safety Report 17566734 (Version 4)
Quarter: 2021Q2

REPORT INFORMATION
  Report Type: Report from Study
  Country: US (occurrence: US)
  Receive Date: 20200320
  Receipt Date: 20210526
  Transmission Date: 20210716
  Serious: Yes (Other)
  Sender: FDA-Public Use
  Company Number: NVSC2020US041660

PATIENT
  Age: 2 Month
  Sex: Male
  Weight: 4.7 kg

DRUGS (1)
  1. ZOLGENSMA [Suspect]
     Active Substance: ONASEMNOGENE ABEPARVOVEC-XIOI
     Indication: SPINAL MUSCULAR ATROPHY
     Dosage: UNK UNK, ONCE/SINGLE (1.1 X E14VG/KG)
     Route: 042
     Dates: start: 20190903

REACTIONS (8)
  - Otitis media [Recovered/Resolved]
  - Troponin I increased [Recovered/Resolved]
  - Aspartate aminotransferase increased [Unknown]
  - Leukopenia [Recovered/Resolved]
  - Alanine aminotransferase increased [Unknown]
  - Leukopenia [Recovered/Resolved]
  - Aspartate aminotransferase increased [Recovered/Resolved]
  - Otitis media [Unknown]

NARRATIVE: CASE EVENT DATE: 20190910
